FAERS Safety Report 9975497 (Version 1)
Quarter: 2014Q1

REPORT INFORMATION
  Report Type: Report from Study
  Country: US (occurrence: US)
  Receive Date: 20140306
  Receipt Date: 20140306
  Transmission Date: 20141002
  Serious: No
  Sender: FDA-Public Use
  Company Number: US-ABBVIE-13P-163-1155657-00

PATIENT
  Age: 50 Year
  Sex: Female
  Weight: 61.29 kg

DRUGS (4)
  1. HUMIRA [Suspect]
     Indication: RHEUMATOID ARTHRITIS
     Route: 058
     Dates: start: 201305, end: 201310
  2. HUMIRA [Suspect]
     Route: 058
     Dates: start: 201310
  3. PREDINISONE [Concomitant]
     Indication: PRODUCT USED FOR UNKNOWN INDICATION
  4. IBUPROFEN (RX STRENGTH) [Concomitant]
     Indication: PRODUCT USED FOR UNKNOWN INDICATION

REACTIONS (7)
  - Pain [Not Recovered/Not Resolved]
  - Pain in extremity [Not Recovered/Not Resolved]
  - Rhinorrhoea [Recovered/Resolved]
  - Sinus headache [Recovered/Resolved]
  - Local swelling [Not Recovered/Not Resolved]
  - Lymph node pain [Recovered/Resolved]
  - Insomnia [Recovered/Resolved]
